FAERS Safety Report 23035414 (Version 2)
Quarter: 2023Q4

REPORT INFORMATION
  Report Type: Report from Study
  Country: US (occurrence: US)
  Receive Date: 20231006
  Receipt Date: 20231214
  Transmission Date: 20240110
  Serious: Yes (Other)
  Sender: FDA-Public Use
  Company Number: US-ABBVIE-5432176

PATIENT
  Age: 71 Year
  Sex: Male

DRUGS (1)
  1. SKYRIZI [Suspect]
     Active Substance: RISANKIZUMAB-RZAA
     Indication: Psoriasis
     Route: 058
     Dates: start: 20201211

REACTIONS (4)
  - Visual impairment [Recovered/Resolved]
  - Lymphoma [Unknown]
  - Macular hole [Unknown]
  - Erythema [Unknown]

NARRATIVE: CASE EVENT DATE: 20210929
